FAERS Safety Report 17266754 (Version 1)
Quarter: 2020Q1

REPORT INFORMATION
  Report Type: Spontaneous
  Country: US (occurrence: US)
  Receive Date: 20200114
  Receipt Date: 20200114
  Transmission Date: 20200409
  Serious: No
  Sender: FDA-Public Use
  Company Number: NVSC2020US006845

PATIENT

DRUGS (3)
  1. FLUDARABINE PHOSPHATE. [Suspect]
     Active Substance: FLUDARABINE PHOSPHATE
     Indication: IMMUNOSUPPRESSANT DRUG THERAPY
     Dosage: 150 MG/M2
     Route: 065
  2. G-CSF [Suspect]
     Active Substance: GRANULOCYTE COLONY-STIMULATING FACTOR NOS
     Indication: IMMUNOSUPPRESSANT DRUG THERAPY
     Dosage: 35 UNK
     Route: 065
  3. CYTARABINE. [Suspect]
     Active Substance: CYTARABINE
     Indication: IMMUNOSUPPRESSANT DRUG THERAPY
     Dosage: 10 G/M2
     Route: 065

REACTIONS (2)
  - Bacterial infection [Unknown]
  - Drug ineffective [Unknown]
